FAERS Safety Report 15058203 (Version 3)
Quarter: 2018Q4

REPORT INFORMATION
  Report Type: Report from Study
  Country: None (occurrence: US)
  Receive Date: 20180625
  Receipt Date: 20181008
  Transmission Date: 20190204
  Serious: Yes (Hospitalization, Other)
  Sender: FDA-Public Use
  Company Number: US-ABBVIE-18K-163-2355190-00

PATIENT
  Age: 68 Year
  Sex: Female
  Weight: 104.42 kg

DRUGS (7)
  1. HUMIRA [Suspect]
     Active Substance: ADALIMUMAB
     Indication: RHEUMATOID ARTHRITIS
     Route: 058
     Dates: start: 2004, end: 2016
  2. HUMIRA [Suspect]
     Active Substance: ADALIMUMAB
     Route: 058
     Dates: start: 201804
  3. PREDNISONE. [Suspect]
     Active Substance: PREDNISONE
     Indication: PRODUCT USED FOR UNKNOWN INDICATION
     Dosage: WEANED OFF
     Route: 065
     Dates: end: 201806
  4. PREDNISONE. [Concomitant]
     Active Substance: PREDNISONE
     Indication: RHEUMATOID ARTHRITIS
  5. HYDROCHLOROTHIAZIDE. [Concomitant]
     Active Substance: HYDROCHLOROTHIAZIDE
     Indication: DIURETIC THERAPY
  6. HUMIRA [Suspect]
     Active Substance: ADALIMUMAB
     Route: 058
     Dates: start: 201803, end: 201804
  7. HUMIRA [Suspect]
     Active Substance: ADALIMUMAB
     Route: 058
     Dates: start: 201711, end: 201712

REACTIONS (16)
  - Peripheral swelling [Unknown]
  - Rheumatoid arthritis [Not Recovered/Not Resolved]
  - Influenza [Recovered/Resolved]
  - Gait disturbance [Unknown]
  - Sinusitis [Recovered/Resolved]
  - Sinusitis [Unknown]
  - Blood pressure fluctuation [Unknown]
  - Erythema [Unknown]
  - Atrial fibrillation [Recovered/Resolved]
  - Pneumonia [Recovered/Resolved]
  - Rheumatoid arthritis [Recovered/Resolved]
  - Aortic aneurysm [Not Recovered/Not Resolved]
  - Muscular weakness [Unknown]
  - Hypertension [Unknown]
  - Hypotension [Recovered/Resolved]
  - Blood glucose fluctuation [Unknown]

NARRATIVE: CASE EVENT DATE: 2016
